FAERS Safety Report 6737651-5 (Version None)
Quarter: 2010Q2

REPORT INFORMATION
  Report Type: 
  Country: None (occurrence: None)
  Receive Date: 20100524
  Receipt Date: 20100520
  Transmission Date: 20101027
  Serious: Yes (Death)
  Sender: FDA-Public Use
  Company Number: DE-ASTRAZENECA-2010SE23050

PATIENT
  Age: 33 Year
  Sex: Female

DRUGS (1)
  1. FELODIPINE [Suspect]
     Route: 048

REACTIONS (5)
  - ABDOMINAL COMPARTMENT SYNDROME [None]
  - LACTIC ACIDOSIS [None]
  - OVERDOSE [None]
  - RENAL FAILURE ACUTE [None]
  - SHOCK [None]
